FAERS Safety Report 23725291 (Version 1)
Quarter: 2024Q2

REPORT INFORMATION
  Report Type: Spontaneous
  Country: US (occurrence: US)
  Receive Date: 20240410
  Receipt Date: 20240410
  Transmission Date: 20240716
  Serious: Yes (Other)
  Sender: FDA-Public Use
  Company Number: US-AMGEN-USASP2024069902

PATIENT
  Age: 45 Year
  Sex: Female

DRUGS (3)
  1. TRASTUZUMAB [Suspect]
     Active Substance: TRASTUZUMAB
     Indication: HER2 positive breast cancer
     Dosage: UNK, 8 CYCLES IN A PERIOD OF 11 MONTHS
     Route: 065
  2. PACLITAXEL [Suspect]
     Active Substance: PACLITAXEL
     Indication: HER2 positive bladder cancer
     Dosage: UNK, 8 CYCLES IN A PERIOD OF 11 MONTHS
     Route: 065
  3. PERJETA [Suspect]
     Active Substance: PERTUZUMAB
     Indication: HER2 positive breast cancer
     Dosage: UNK, 8 CYCLES IN A PERIOD OF 11 MONTHS
     Route: 065

REACTIONS (2)
  - Cardiac failure [Recovering/Resolving]
  - Off label use [Recovering/Resolving]
